FAERS Safety Report 5179211-6 (Version None)
Quarter: 2006Q4

REPORT INFORMATION
  Report Type: 
  Country: None (occurrence: None)
  Receive Date: 20061211
  Receipt Date: 20061206
  Transmission Date: 20070319
  Serious: Yes (Other)
  Sender: FDA-Public Use
  Company Number: 2006SP006415

PATIENT
  Age: 69 Year
  Sex: Male
  Weight: 71.8 kg

DRUGS (13)
  1. TEMODAR [Suspect]
     Indication: GLIOBLASTOMA MULTIFORME
     Dosage: 75 MG/M2; QM; PO
     Route: 048
     Dates: start: 20061017, end: 20061031
  2. TEMODAR [Suspect]
  3. ATIVAN (CON.) [Concomitant]
  4. BACTRIM DS (CON.) [Concomitant]
  5. DEXAMETHASONE (CON.) [Concomitant]
  6. DILANTIN (CON.) [Concomitant]
  7. GARLIC TABLET (CON.) [Concomitant]
  8. LUNESTA (CON.) [Concomitant]
  9. MILK OF MAGNESIA (CON.) [Concomitant]
  10. MULTIPLE VITAMIN (CON.) [Concomitant]
  11. PEPCID (CON.) [Concomitant]
  12. SENOKOT-S (CON.) [Concomitant]
  13. ZOFRAN (CON.) [Concomitant]

REACTIONS (1)
  - DEEP VEIN THROMBOSIS [None]
